FAERS Safety Report 25705952 (Version 1)
Quarter: 2025Q3

REPORT INFORMATION
  Report Type: Spontaneous
  Country: CN (occurrence: CN)
  Receive Date: 20250820
  Receipt Date: 20250820
  Transmission Date: 20251020
  Serious: Yes (Hospitalization)
  Sender: BAYER HEALTHCARE PHARMACEUTICALS INC.
  Company Number: CN-BAYER-2025A110434

PATIENT
  Age: 30 Year
  Sex: Female
  Weight: 60 kg

DRUGS (2)
  1. ULTRAVIST [Suspect]
     Active Substance: IOPROMIDE
     Indication: Angiogram pulmonary
     Route: 041
     Dates: start: 20250804, end: 20250804
  2. ULTRAVIST [Suspect]
     Active Substance: IOPROMIDE
     Indication: Contusion

REACTIONS (8)
  - Contrast media allergy [Recovering/Resolving]
  - Rash erythematous [Recovering/Resolving]
  - Hypopnoea [Recovering/Resolving]
  - Respiratory rate increased [Recovering/Resolving]
  - Heart rate increased [Recovering/Resolving]
  - Chest discomfort [Recovering/Resolving]
  - Dyspnoea [Recovering/Resolving]
  - Feeling cold [Recovering/Resolving]

NARRATIVE: CASE EVENT DATE: 20250804
